FAERS Safety Report 9604521 (Version 1)
Quarter: 2013Q4

REPORT INFORMATION
  Report Type: Spontaneous
  Country: US (occurrence: US)
  Receive Date: 20131008
  Receipt Date: 20131008
  Transmission Date: 20140711
  Serious: No
  Sender: FDA-Public Use
  Company Number: US-009507513-1310USA003523

PATIENT
  Age: 91 Year
  Sex: Male

DRUGS (1)
  1. DULERA [Suspect]
     Indication: ASTHMA
     Dosage: UNK, PRN
     Route: 055
     Dates: start: 201210

REACTIONS (1)
  - Musculoskeletal chest pain [Not Recovered/Not Resolved]
